FAERS Safety Report 18962424 (Version 1)
Quarter: 2021Q1

REPORT INFORMATION
  Report Type: Spontaneous
  Country: US (occurrence: US)
  Receive Date: 20210302
  Receipt Date: 20210302
  Transmission Date: 20210420
  Serious: Yes (Disabling, Other)
  Sender: FDA-Public Use
  Company Number: None

PATIENT
  Age: 38 Year
  Sex: Female
  Weight: 48.6 kg

DRUGS (5)
  1. DOXYCYCLINE. [Concomitant]
     Active Substance: DOXYCYCLINE
  2. IBUPROFEN. [Concomitant]
     Active Substance: IBUPROFEN
  3. IBUPROFEN. [Suspect]
     Active Substance: IBUPROFEN
     Indication: PAIN
     Dosage: ?          QUANTITY:3 CAPSULE(S);?
     Route: 048
  4. IBUPROFEN. [Suspect]
     Active Substance: IBUPROFEN
     Indication: MUSCLE SPASMS
     Dosage: ?          QUANTITY:3 CAPSULE(S);?
     Route: 048
  5. IBUPROFEN. [Suspect]
     Active Substance: IBUPROFEN
     Indication: INJURY
     Dosage: ?          QUANTITY:3 CAPSULE(S);?
     Route: 048

REACTIONS (2)
  - Stevens-Johnson syndrome [None]
  - Drug hypersensitivity [None]

NARRATIVE: CASE EVENT DATE: 20191001
